FAERS Safety Report 6612876-8 (Version None)
Quarter: 2010Q1

REPORT INFORMATION
  Report Type: 
  Country: None (occurrence: None)
  Receive Date: 20100303
  Receipt Date: 20100226
  Transmission Date: 20100710
  Serious: Yes (Hospitalization)
  Sender: FDA-Public Use
  Company Number: CH-MERCK-1002CHE00024

PATIENT
  Age: 87 Year
  Sex: Female

DRUGS (10)
  1. FOSAMAX [Suspect]
     Route: 048
     Dates: start: 20040101, end: 20091219
  2. CALCIUM CARBONATE AND CHOLECALCIFEROL [Concomitant]
     Route: 048
  3. AMIODARONE HYDROCHLORIDE [Concomitant]
     Indication: ATRIAL FIBRILLATION
     Route: 048
  4. AMIODARONE HYDROCHLORIDE [Concomitant]
     Indication: ATRIAL FLUTTER
     Route: 048
  5. DIGOXIN [Concomitant]
     Route: 048
  6. ACENOCOUMAROL [Concomitant]
     Indication: ATRIAL FIBRILLATION
     Route: 048
  7. ACENOCOUMAROL [Concomitant]
     Indication: ATRIAL FLUTTER
     Route: 048
  8. HYDROCHLOROTHIAZIDE AND LOSARTAN POTASSIUM [Concomitant]
     Indication: ESSENTIAL HYPERTENSION
     Route: 048
  9. PIRACETAM [Concomitant]
     Route: 048
  10. BENSERAZIDE HYDROCHLORIDE AND LEVODOPA [Concomitant]
     Indication: PARKINSON'S DISEASE
     Route: 048

REACTIONS (1)
  - PATHOLOGICAL FRACTURE [None]
